FAERS Safety Report 7607617-1 (Version None)
Quarter: 2011Q3

REPORT INFORMATION
  Report Type: 
  Country: None (occurrence: None)
  Receive Date: 20110713
  Receipt Date: 20110218
  Transmission Date: 20111222
  Serious: Yes (Hospitalization, Other)
  Sender: FDA-Public Use
  Company Number: PHEH2009US15369

PATIENT
  Sex: Male

DRUGS (7)
  1. EXJADE [Suspect]
     Dosage: 1500 MG, DAILY
     Route: 048
  2. FOLIC ACID [Concomitant]
     Indication: ANAEMIA
     Dosage: 1 MG, UNK
     Route: 048
  3. PERCOCET [Concomitant]
  4. NORVASC [Concomitant]
     Indication: HYPERTENSION
     Dosage: 5 MG, UNK
     Route: 048
  5. TYLENOL-500 [Concomitant]
  6. EXJADE [Suspect]
     Indication: IRON OVERLOAD
     Dosage: 500 MG, UNK
  7. ASPIRIN [Concomitant]

REACTIONS (14)
  - BLOOD CREATININE INCREASED [None]
  - BACK PAIN [None]
  - DYSURIA [None]
  - PAIN [None]
  - PAIN IN EXTREMITY [None]
  - RENAL FAILURE ACUTE [None]
  - MICTURITION DISORDER [None]
  - HAEMORRHOIDS [None]
  - CONSTIPATION [None]
  - BLOOD LACTATE DEHYDROGENASE INCREASED [None]
  - PRODUCTIVE COUGH [None]
  - SICKLE CELL ANAEMIA WITH CRISIS [None]
  - WHITE BLOOD CELL COUNT INCREASED [None]
  - PYREXIA [None]
